FAERS Safety Report 8592754-8 (Version None)
Quarter: 2012Q3

REPORT INFORMATION
  Report Type: 
  Country: None (occurrence: None)
  Receive Date: 20120814
  Receipt Date: 20120808
  Transmission Date: 20120928
  Serious: No
  Sender: FDA-Public Use
  Company Number: US-PFIZER INC-2012089404

PATIENT
  Sex: Male

DRUGS (2)
  1. VIAGRA [Suspect]
     Dosage: UNK
  2. CADUET [Suspect]
     Dosage: UNK

REACTIONS (3)
  - HEADACHE [None]
  - HYPERTENSION [None]
  - MALAISE [None]
